FAERS Safety Report 13191988 (Version 3)
Quarter: 2017Q1

REPORT INFORMATION
  Report Type: Spontaneous
  Country: US (occurrence: US)
  Receive Date: 20170207
  Receipt Date: 20170330
  Transmission Date: 20170428
  Serious: No
  Sender: FDA-Public Use
  Company Number: US-PFIZER INC-2017050704

PATIENT
  Age: 6 Year
  Sex: Male
  Weight: 23 kg

DRUGS (1)
  1. QUILLIVANT XR [Suspect]
     Active Substance: METHYLPHENIDATE HYDROCHLORIDE
     Indication: ATTENTION DEFICIT/HYPERACTIVITY DISORDER
     Dosage: 4 ML, DAILY (IN THE MORNING)
     Route: 048
     Dates: start: 20160429

REACTIONS (3)
  - Dysgeusia [Unknown]
  - Product taste abnormal [Unknown]
  - Drug ineffective [Unknown]

NARRATIVE: CASE EVENT DATE: 20170124
